FAERS Safety Report 13948220 (Version 1)
Quarter: 2017Q3

REPORT INFORMATION
  Report Type: Spontaneous
  Country: US (occurrence: US)
  Receive Date: 20170908
  Receipt Date: 20170908
  Transmission Date: 20171128
  Serious: No
  Sender: FDA-Public Use
  Company Number: US-009507513-1708USA012523

PATIENT
  Sex: Female

DRUGS (1)
  1. SIVEXTRO [Suspect]
     Active Substance: TEDIZOLID PHOSPHATE
     Indication: ENTEROCOCCAL INFECTION
     Dosage: 200 MG, ONCE DAILY
     Route: 048
     Dates: start: 201706, end: 20170824

REACTIONS (3)
  - Paraesthesia [Recovering/Resolving]
  - Vision blurred [Recovering/Resolving]
  - Blood glucose increased [Recovered/Resolved]

NARRATIVE: CASE EVENT DATE: 2017
